FAERS Safety Report 21447501 (Version 1)
Quarter: 2022Q4

REPORT INFORMATION
  Report Type: Spontaneous
  Country: HR (occurrence: None)
  Receive Date: 20221012
  Receipt Date: 20221012
  Transmission Date: 20230113
  Serious: Yes (Other)
  Sender: FDA-Public Use
  Company Number: 2022A336727

PATIENT
  Sex: Male

DRUGS (3)
  1. QUETIAPINE [Suspect]
     Active Substance: QUETIAPINE
     Dosage: 1 DF = 1 TBL
     Route: 048
     Dates: start: 20220807, end: 20220807
  2. BUPRENORPHINE [Suspect]
     Active Substance: BUPRENORPHINE
     Dosage: 1 DF = 1 TBL
     Route: 048
     Dates: start: 20220807, end: 20220807
  3. PREGABALIN [Suspect]
     Active Substance: PREGABALIN
     Dosage: 1 DF = 1 TBL
     Route: 048
     Dates: start: 20220807, end: 20220807

REACTIONS (3)
  - Intentional overdose [Unknown]
  - Suicide attempt [Unknown]
  - Somnolence [Unknown]

NARRATIVE: CASE EVENT DATE: 20220807
